FAERS Safety Report 6240982-9 (Version None)
Quarter: 2009Q2

REPORT INFORMATION
  Report Type: 
  Country: None (occurrence: None)
  Receive Date: 20090623
  Receipt Date: 20090616
  Transmission Date: 20091009
  Serious: Yes (Other)
  Sender: FDA-Public Use
  Company Number: A0792038A

PATIENT
  Age: 34 Year
  Sex: Male

DRUGS (1)
  1. LAMICTAL [Suspect]
     Indication: BIPOLAR DISORDER
     Dosage: 150MG UNKNOWN
     Route: 048
     Dates: start: 20080512, end: 20090211

REACTIONS (6)
  - ARTHRALGIA [None]
  - BLOOD HOMOCYSTEINE INCREASED [None]
  - INFLUENZA LIKE ILLNESS [None]
  - LUPUS-LIKE SYNDROME [None]
  - SKIN IRRITATION [None]
  - VISION BLURRED [None]
